FAERS Safety Report 14377624 (Version 2)
Quarter: 2018Q1

REPORT INFORMATION
  Report Type: Report from Study
  Country: IT (occurrence: IT)
  Receive Date: 20180111
  Receipt Date: 20180316
  Transmission Date: 20180509
  Serious: Yes (Hospitalization, Other)
  Sender: FDA-Public Use
  Company Number: PHHY2017IT166319

PATIENT
  Age: 22 Year
  Sex: Female

DRUGS (2)
  1. GILENYA [Suspect]
     Active Substance: FINGOLIMOD HYDROCHLORIDE
     Indication: RELAPSING-REMITTING MULTIPLE SCLEROSIS
     Dosage: 0.5 MG, QD
     Route: 065
     Dates: start: 20171106
  2. FOLINA [Concomitant]
     Active Substance: FOLIC ACID
     Indication: PRODUCT USED FOR UNKNOWN INDICATION
     Dosage: 1 DF, QD
     Route: 065

REACTIONS (4)
  - Atrioventricular block first degree [Recovered/Resolved]
  - Atrioventricular block second degree [Recovered/Resolved]
  - Heart rate decreased [Unknown]
  - Electrocardiogram T wave abnormal [Unknown]

NARRATIVE: CASE EVENT DATE: 20171106
